FAERS Safety Report 13899013 (Version 1)
Quarter: 2017Q3

REPORT INFORMATION
  Report Type: Spontaneous
  Country: US (occurrence: US)
  Receive Date: 20170824
  Receipt Date: 20170824
  Transmission Date: 20171127
  Serious: No
  Sender: FDA-Public Use
  Company Number: US-SUN PHARMACEUTICAL INDUSTRIES LTD-2017US-147309

PATIENT

DRUGS (1)
  1. BUPRENORPHINE. [Suspect]
     Active Substance: BUPRENORPHINE
     Indication: PRODUCT USED FOR UNKNOWN INDICATION
     Route: 065

REACTIONS (9)
  - Decreased appetite [Unknown]
  - Asthenia [Unknown]
  - Oral discomfort [Unknown]
  - Oral mucosal erythema [Unknown]
  - Mouth ulceration [Unknown]
  - Constipation [Unknown]
  - Abdominal discomfort [Unknown]
  - Product substitution issue [Unknown]
  - Therapeutic response decreased [Unknown]
